FAERS Safety Report 8001387-3 (Version None)
Quarter: 2011Q4

REPORT INFORMATION
  Report Type: 
  Country: None (occurrence: None)
  Receive Date: 20111219
  Receipt Date: 20111206
  Transmission Date: 20120403
  Serious: Yes (Hospitalization, Other)
  Sender: FDA-Public Use
  Company Number: ACO_28394_2011

PATIENT
  Age: 59 Year
  Sex: Female

DRUGS (9)
  1. AMPYRA [Suspect]
     Indication: PRODUCT USED FOR UNKNOWN INDICATION
     Dosage: 10 MG, BID
     Dates: start: 20101101, end: 20111030
  2. ARICEPT [Concomitant]
  3. GILENYA [Concomitant]
  4. TRIAMTERENE [Concomitant]
  5. MIRAPEX [Concomitant]
  6. BACLOFEN [Concomitant]
  7. BETASERON [Concomitant]
  8. LYRICA [Concomitant]
  9. DIOVAN [Concomitant]

REACTIONS (8)
  - CONVULSION [None]
  - MEMORY IMPAIRMENT [None]
  - INAPPROPRIATE SCHEDULE OF DRUG ADMINISTRATION [None]
  - OVERDOSE [None]
  - HALLUCINATION [None]
  - DIARRHOEA [None]
  - URINARY TRACT INFECTION [None]
  - MULTIPLE SCLEROSIS RELAPSE [None]
